FAERS Safety Report 24456955 (Version 1)
Quarter: 2024Q4

REPORT INFORMATION
  Report Type: Spontaneous
  Country: JP (occurrence: JP)
  Receive Date: 20241018
  Receipt Date: 20241018
  Transmission Date: 20250114
  Serious: Yes (Other)
  Sender: BRISTOL-MYERS SQUIBB COMPANY
  Company Number: JP-BRISTOL-MYERS SQUIBB COMPANY-2024-162206

PATIENT
  Age: 67 Year
  Sex: Female

DRUGS (5)
  1. TRIAMCINOLONE ACETONIDE [Suspect]
     Active Substance: TRIAMCINOLONE ACETONIDE
     Indication: Eczema
     Dosage: EAR INSTILLATION ONCE A MONTH
     Route: 001
  2. BETAMETHASONE SODIUM PHOSPHATE [Suspect]
     Active Substance: BETAMETHASONE SODIUM PHOSPHATE
     Indication: Eczema
     Dosage: EAR DROPS
     Route: 001
  3. ALUMINUM ACETATE [Suspect]
     Active Substance: ALUMINUM ACETATE
     Indication: Eczema
     Dosage: 4-FOLD BUROW SOLUTION EAR INSTILLATION ONCE A WEEK
     Route: 001
  4. OFLOXACIN [Concomitant]
     Active Substance: OFLOXACIN
     Indication: Ear disorder
     Dosage: EAR DROPS
     Route: 001
  5. CEFDITOREN [Concomitant]
     Active Substance: CEFDITOREN
     Indication: Ear disorder
     Dosage: 5 DAYS, ORAL
     Route: 048

REACTIONS (4)
  - Fungal infection [Recovering/Resolving]
  - Papilloma [Unknown]
  - Tympanic membrane perforation [Unknown]
  - Papilloma viral infection [Unknown]
